FAERS Safety Report 17088774 (Version 4)
Quarter: 2020Q1

REPORT INFORMATION
  Report Type: Spontaneous
  Country: US (occurrence: US)
  Receive Date: 20191128
  Receipt Date: 20200113
  Transmission Date: 20200409
  Serious: Yes (Life-Threatening, Hospitalization, Other)
  Sender: FDA-Public Use
  Company Number: US-ABBVIE-19K-163-3013766-00

PATIENT
  Age: 20 Year
  Sex: Male

DRUGS (8)
  1. LACOSAMIDE. [Concomitant]
     Active Substance: LACOSAMIDE
     Indication: PRODUCT USED FOR UNKNOWN INDICATION
     Route: 065
     Dates: start: 2017
  2. VALPROIC ACID. [Suspect]
     Active Substance: VALPROIC ACID
     Indication: STATUS EPILEPTICUS
     Route: 065
     Dates: start: 201710, end: 201712
  3. LEVETIRACETAM. [Concomitant]
     Active Substance: LEVETIRACETAM
     Indication: PRODUCT USED FOR UNKNOWN INDICATION
     Dates: start: 2017
  4. CYCLOPHOSPHAMIDE. [Concomitant]
     Active Substance: CYCLOPHOSPHAMIDE
     Indication: PRODUCT USED FOR UNKNOWN INDICATION
     Dates: start: 2017
  5. MYCOPHENOLATE MOFETIL. [Concomitant]
     Active Substance: MYCOPHENOLATE MOFETIL
     Indication: PRODUCT USED FOR UNKNOWN INDICATION
     Route: 065
     Dates: start: 2017
  6. VALPROIC ACID. [Suspect]
     Active Substance: VALPROIC ACID
     Dosage: INCREASED DOSE
     Route: 065
     Dates: start: 201712, end: 201801
  7. RITUXIMAB. [Concomitant]
     Active Substance: RITUXIMAB
     Indication: PRODUCT USED FOR UNKNOWN INDICATION
     Dosage: INTRAVENOUS INFUSION
     Dates: start: 2017
  8. PHENYTOIN. [Concomitant]
     Active Substance: PHENYTOIN
     Indication: PRODUCT USED FOR UNKNOWN INDICATION
     Route: 065
     Dates: start: 2017

REACTIONS (14)
  - Drug-induced liver injury [Recovered/Resolved]
  - Hepatic steatosis [Recovered/Resolved]
  - Vomiting [Recovered/Resolved]
  - Hepatic necrosis [Recovered/Resolved]
  - Lethargy [Recovered/Resolved]
  - Coagulopathy [Recovered/Resolved]
  - Nausea [Recovered/Resolved]
  - Hepatic function abnormal [Recovered/Resolved]
  - Jaundice [Recovered/Resolved]
  - Hyperammonaemia [Recovered/Resolved]
  - Acute hepatic failure [Recovered/Resolved]
  - Fatigue [Recovered/Resolved]
  - Hepatic cirrhosis [Recovered/Resolved]
  - Mental status changes [Recovered/Resolved]

NARRATIVE: CASE EVENT DATE: 201801
